FAERS Safety Report 10062743 (Version 1)
Quarter: 2014Q2

REPORT INFORMATION
  Report Type: Spontaneous
  Country: US (occurrence: US)
  Receive Date: 20140407
  Receipt Date: 20140407
  Transmission Date: 20141212
  Serious: Yes (Hospitalization)
  Sender: FDA-Public Use
  Company Number: US-JNJFOC-20140403942

PATIENT
  Age: 74 Year
  Sex: Male

DRUGS (9)
  1. IMBRUVICA [Suspect]
     Indication: MANTLE CELL LYMPHOMA
     Route: 048
     Dates: start: 20140213, end: 20140321
  2. DIGOXIN [Concomitant]
  3. ALLOPURINOL [Concomitant]
     Route: 048
  4. WARFARIN [Concomitant]
  5. HYDROCODONE W/PARACETAMOL [Concomitant]
  6. OMEPRAZOLE [Concomitant]
  7. TAMSULOSIN [Concomitant]
  8. ADVAIR [Concomitant]
     Route: 055
  9. DILTIAZEM [Concomitant]

REACTIONS (2)
  - Cerebrovascular accident [Not Recovered/Not Resolved]
  - Drug ineffective [Unknown]
